FAERS Safety Report 5881868-9 (Version None)
Quarter: 2008Q3

REPORT INFORMATION
  Report Type: 
  Country: None (occurrence: None)
  Receive Date: 20080912
  Receipt Date: 20080717
  Transmission Date: 20090109
  Serious: No
  Sender: FDA-Public Use
  Company Number: US-ABBOTT-08P-163-0464018-00

PATIENT
  Sex: Female
  Weight: 51.302 kg

DRUGS (4)
  1. HUMIRA [Suspect]
     Indication: RHEUMATOID ARTHRITIS
     Route: 058
     Dates: start: 20080301
  2. TRAZODONE HCL [Concomitant]
     Indication: SLEEP DISORDER THERAPY
     Dosage: 100 MG AT NIGHT
     Route: 048
     Dates: start: 20030101
  3. ACYCLOVIR SODIUM [Concomitant]
     Indication: HERPES VIRUS INFECTION
     Route: 048
     Dates: start: 20080301
  4. PIROXICAM [Concomitant]
     Indication: RHEUMATOID ARTHRITIS
     Dosage: 20 MG DAILY
     Route: 048
     Dates: start: 20080301

REACTIONS (3)
  - BRONCHITIS [None]
  - COUGH [None]
  - NASOPHARYNGITIS [None]
